FAERS Safety Report 4575643-5 (Version None)
Quarter: 2005Q1

REPORT INFORMATION
  Report Type: 
  Country: None (occurrence: None)
  Receive Date: 20050209
  Receipt Date: 20050128
  Transmission Date: 20050727
  Serious: Yes (Hospitalization)
  Sender: FDA-Public Use
  Company Number: AU-GLAXOSMITHKLINE-B0370164A

PATIENT
  Age: 51 Year
  Sex: Female
  Weight: 55 kg

DRUGS (4)
  1. IMIGRAN [Suspect]
     Indication: MIGRAINE
     Dosage: 100MG SINGLE DOSE
     Route: 065
     Dates: start: 19930910, end: 19930910
  2. THYROXINE SODIUM [Concomitant]
     Indication: ILL-DEFINED DISORDER
     Dosage: 150MCG PER DAY
     Route: 065
     Dates: start: 19930301
  3. PREMARIN [Concomitant]
     Indication: ILL-DEFINED DISORDER
     Route: 065
     Dates: start: 19910101
  4. PROGESTERONE [Concomitant]
     Indication: ILL-DEFINED DISORDER
     Route: 065
     Dates: start: 19910101

REACTIONS (2)
  - DYSPEPSIA [None]
  - GASTRIC ULCER [None]
